FAERS Safety Report 10958192 (Version 1)
Quarter: 2015Q1

REPORT INFORMATION
  Report Type: Spontaneous
  Country: US (occurrence: US)
  Receive Date: 20150326
  Receipt Date: 20150326
  Transmission Date: 20150721
  Serious: Yes (Other)
  Sender: FDA-Public Use
  Company Number: CHPA2015US004031

PATIENT

DRUGS (1)
  1. EXCEDRIN MIGRAINE [Suspect]
     Active Substance: ACETAMINOPHEN\ASPIRIN\CAFFEINE
     Indication: HEADACHE
     Dosage: UNK
     Route: 065

REACTIONS (5)
  - Medication overuse headache [Unknown]
  - Therapeutic response unexpected [Unknown]
  - Hiatus hernia [Unknown]
  - Ulcer [Unknown]
  - Product use issue [Unknown]
